FAERS Safety Report 7621189 (Version 3)
Quarter: 2014Q1

REPORT INFORMATION
  Report Type: Spontaneous
  Country: US (occurrence: US)
  Receive Date: 20101008
  Receipt Date: 20140122
  Transmission Date: 20141002
  Serious: Yes (Hospitalization)
  Sender: FDA-Public Use
  Company Number: US-BAYER-201035873NA

PATIENT
  Age: 24 Year
  Sex: Female
  Weight: 99.77 kg

DRUGS (7)
  1. YASMIN [Suspect]
     Dosage: UNK
     Dates: start: 2001, end: 2008
  2. OCELLA [Suspect]
     Indication: PRODUCT USED FOR UNKNOWN INDICATION
     Dosage: UNK
     Dates: start: 2008
  3. GUAIFENEX [Concomitant]
     Dosage: 600/120
     Dates: start: 20031001
  4. AMOXICILLIN [Concomitant]
     Dosage: 500 MG, UNK
     Dates: start: 20031001
  5. AMOXICILLIN [Concomitant]
     Dosage: 250 MG, UNK
     Dates: start: 20031224
  6. NEXIUM [Concomitant]
  7. ALDACTONE [SPIRONOLACTONE] [Concomitant]

REACTIONS (2)
  - Gallbladder disorder [None]
  - Cholecystitis acute [None]
